FAERS Safety Report 26054042 (Version 1)
Quarter: 2025Q4

REPORT INFORMATION
  Report Type: Spontaneous
  Country: CN (occurrence: CN)
  Receive Date: 20251117
  Receipt Date: 20251117
  Transmission Date: 20260117
  Serious: Yes (Other)
  Sender: PFIZER
  Company Number: CN-PFIZER INC-PV202500134174

PATIENT
  Age: 2 Day
  Sex: Male
  Weight: 3.25 kg

DRUGS (2)
  1. MEROPENEM [Suspect]
     Active Substance: MEROPENEM
     Indication: Pneumonia
     Dosage: 0.06 G, 2X/DAY
     Route: 041
     Dates: start: 20250812, end: 20250816
  2. MEROPENEM [Suspect]
     Active Substance: MEROPENEM
     Dosage: 0.064 G, 3X/DAY
     Route: 041
     Dates: start: 20250817

REACTIONS (2)
  - Infantile diarrhoea [Recovering/Resolving]
  - Off label use [Unknown]

NARRATIVE: CASE EVENT DATE: 20250812
